FAERS Safety Report 13937124 (Version 6)
Quarter: 2017Q4

REPORT INFORMATION
  Report Type: Spontaneous
  Country: BR (occurrence: BR)
  Receive Date: 20170905
  Receipt Date: 20171025
  Transmission Date: 20180320
  Serious: Yes (Hospitalization, Other)
  Sender: FDA-Public Use
  Company Number: BR-SA-2017SA162836

PATIENT
  Age: 26 Year
  Sex: Female
  Weight: 50 kg

DRUGS (9)
  1. AMLODIPINE [Concomitant]
     Active Substance: AMLODIPINE BESYLATE
     Route: 065
  2. ENALAPRIL [Concomitant]
     Active Substance: ENALAPRIL
     Route: 065
  3. LOSARTAN. [Concomitant]
     Active Substance: LOSARTAN
     Route: 065
  4. ATENOLOL. [Concomitant]
     Active Substance: ATENOLOL
     Route: 065
  5. SOLU-MEDROL [Concomitant]
     Active Substance: METHYLPREDNISOLONE SODIUM SUCCINATE
     Dosage: 500 MG
     Route: 065
  6. THYMOGLOBULINE [Suspect]
     Active Substance: LAPINE T-LYMPHOCYTE IMMUNE GLOBULIN
     Indication: RENAL TRANSPLANT
     Dosage: DOSE: 9 VIALS FROM LOT 7W1146, 1 VIAL FROM LOT 7W0780
     Route: 042
     Dates: start: 20170828
  7. THYMOGLOBULINE [Suspect]
     Active Substance: LAPINE T-LYMPHOCYTE IMMUNE GLOBULIN
     Indication: RENAL TRANSPLANT
     Dosage: DOSE: 9 VIALS FROM LOT 7W1146, 1 VIAL FROM LOT 7W0780
     Route: 042
     Dates: start: 20170828
  8. METHYLDOPA. [Concomitant]
     Active Substance: METHYLDOPA
     Route: 065
  9. KEFAZOL [Concomitant]
     Active Substance: CEFAZOLIN SODIUM
     Route: 065
     Dates: start: 201708

REACTIONS (14)
  - Hepatic failure [Unknown]
  - Hypovolaemic shock [Unknown]
  - Hypothermia [Unknown]
  - Abdominal sepsis [Unknown]
  - Systemic inflammatory response syndrome [Unknown]
  - Hypotension [Unknown]
  - Hypoglycaemia [Unknown]
  - Blood pressure abnormal [Unknown]
  - Distributive shock [Unknown]
  - Obstructive airways disorder [Not Recovered/Not Resolved]
  - Coagulopathy [Unknown]
  - Hepatic enzyme increased [Unknown]
  - Acidosis [Unknown]
  - Haemorrhage [Unknown]

NARRATIVE: CASE EVENT DATE: 2017
